FAERS Safety Report 9841851 (Version 1)
Quarter: 2014Q1

REPORT INFORMATION
  Report Type: Spontaneous
  Country: US (occurrence: US)
  Receive Date: 20140124
  Receipt Date: 20140124
  Transmission Date: 20141002
  Serious: No
  Sender: FDA-Public Use
  Company Number: US-BAYER-2014-008218

PATIENT
  Sex: Male

DRUGS (3)
  1. FINACEA [Suspect]
     Indication: ROSACEA
     Dosage: UNK
  2. FINACEA [Suspect]
     Indication: ROSACEA
  3. FINACEA [Suspect]
     Indication: ROSACEA
     Dosage: UNK

REACTIONS (1)
  - Burning sensation [Not Recovered/Not Resolved]
